FAERS Safety Report 25867367 (Version 1)
Quarter: 2025Q4

REPORT INFORMATION
  Report Type: Other
  Country: CA (occurrence: CA)
  Receive Date: 20251001
  Receipt Date: 20251001
  Transmission Date: 20260118
  Serious: Yes (Hospitalization, Other)
  Sender: CELLTRION
  Company Number: CA-CELLTRION INC.-2025CA035037

PATIENT

DRUGS (6)
  1. RITUXIMAB [Suspect]
     Active Substance: RITUXIMAB
     Indication: Cardiomyopathy
     Route: 065
  2. BISOPROLOL [Concomitant]
     Active Substance: BISOPROLOL
  3. BOSENTAN [Concomitant]
     Active Substance: BOSENTAN
  4. MYCOPHENOLATE SODIUM [Concomitant]
     Active Substance: MYCOPHENOLATE SODIUM
  5. NIFEDIPINE [Concomitant]
     Active Substance: NIFEDIPINE
     Route: 061
  6. TADALAFIL [Concomitant]
     Active Substance: TADALAFIL

REACTIONS (3)
  - Ventricular tachycardia [Unknown]
  - Off label use [Unknown]
  - Intentional product use issue [Unknown]
